FAERS Safety Report 18663907 (Version 2)
Quarter: 2021Q1

REPORT INFORMATION
  Report Type: Report from Study
  Country: None (occurrence: US)
  Receive Date: 20201224
  Receipt Date: 20210225
  Transmission Date: 20210419
  Serious: Yes (Hospitalization, Other)
  Sender: FDA-Public Use
  Company Number: US-ABBVIE-20K-163-3702303-00

PATIENT
  Age: 52 Year
  Sex: Female

DRUGS (3)
  1. HUMIRA [Suspect]
     Active Substance: ADALIMUMAB
     Route: 058
     Dates: start: 20210114, end: 20210201
  2. HUMIRA [Suspect]
     Active Substance: ADALIMUMAB
     Indication: PSORIASIS
     Dosage: DAY 1
     Route: 058
     Dates: start: 20200304, end: 20200304
  3. HUMIRA [Suspect]
     Active Substance: ADALIMUMAB
     Indication: PSORIASIS
     Dosage: DAY 8 AND THEREAFTER
     Route: 058
     Dates: start: 20200311, end: 20201130

REACTIONS (7)
  - Post procedural complication [Recovered/Resolved]
  - Spinal cord disorder [Recovered/Resolved]
  - Hemiparesis [Recovered/Resolved]
  - Drug ineffective [Unknown]
  - Musculoskeletal disorder [Recovered/Resolved]
  - Intervertebral disc protrusion [Recovered/Resolved]
  - Impaired driving ability [Recovered/Resolved]

NARRATIVE: CASE EVENT DATE: 2020
